FAERS Safety Report 4797412-3 (Version None)
Quarter: 2005Q4

REPORT INFORMATION
  Report Type: 
  Country: None (occurrence: None)
  Receive Date: 20051011
  Receipt Date: 20051011
  Transmission Date: 20060501
  Serious: Yes (Hospitalization)
  Sender: FDA-Public Use
  Company Number: None

PATIENT
  Age: 75 Year
  Sex: Male
  Weight: 127.5 kg

DRUGS (1)
  1. ZOSYN [Suspect]
     Indication: SKIN ULCER
     Dosage: 13.5G,3.375Q6H,INTRAVEN
     Route: 042
     Dates: start: 20050707, end: 20050713

REACTIONS (1)
  - RASH [None]
